FAERS Safety Report 5988290-5 (Version None)
Quarter: 2008Q4

REPORT INFORMATION
  Report Type: 
  Country: None (occurrence: None)
  Receive Date: 20081204
  Receipt Date: 20081120
  Transmission Date: 20090506
  Serious: Yes (Other)
  Sender: FDA-Public Use
  Company Number: 08-001878

PATIENT
  Sex: Female

DRUGS (1)
  1. DORYX [Suspect]
     Indication: PNEUMONIA
     Dosage: 100 MG, QD, ORAL
     Route: 048

REACTIONS (1)
  - HEPATIC ENZYME INCREASED [None]
